FAERS Safety Report 5484859-5 (Version None)
Quarter: 2007Q4

REPORT INFORMATION
  Report Type: 
  Country: None (occurrence: None)
  Receive Date: 20071010
  Receipt Date: 20070924
  Transmission Date: 20080405
  Serious: Yes (Life-Threatening, Hospitalization, Other)
  Sender: FDA-Public Use
  Company Number: 07102268

PATIENT
  Age: 79 Year
  Sex: Male

DRUGS (1)
  1. WARFARIN SODIUM [Suspect]
     Indication: CEREBRAL ISCHAEMIA
     Dosage: 5MG, QD, ORAL
     Route: 048

REACTIONS (7)
  - COLONIC HAEMATOMA [None]
  - HAEMATOMA [None]
  - HAEMOGLOBIN DECREASED [None]
  - INTERNATIONAL NORMALISED RATIO DECREASED [None]
  - INTRA-ABDOMINAL HAEMORRHAGE [None]
  - PROTHROMBIN TIME PROLONGED [None]
  - SMALL INTESTINAL OBSTRUCTION [None]
